FAERS Safety Report 21872065 (Version 1)
Quarter: 2023Q1

REPORT INFORMATION
  Report Type: Spontaneous
  Country: CN (occurrence: CN)
  Receive Date: 20230117
  Receipt Date: 20230117
  Transmission Date: 20230418
  Serious: Yes (Other)
  Sender: FDA-Public Use
  Company Number: None

PATIENT
  Age: 35 Year
  Sex: Female
  Weight: 65 kg

DRUGS (3)
  1. CYCLOPHOSPHAMIDE [Suspect]
     Active Substance: CYCLOPHOSPHAMIDE
     Indication: Neoplasm malignant
     Dosage: 1 G, QD, DILUTED WITH 30 ML OF 0.9% SODIUM CHLORIDE
     Route: 041
     Dates: start: 20230103, end: 20230104
  2. CYCLOPHOSPHAMIDE [Suspect]
     Active Substance: CYCLOPHOSPHAMIDE
     Indication: Chemotherapy
  3. SODIUM CHLORIDE [Suspect]
     Active Substance: SODIUM CHLORIDE
     Indication: Medication dilution
     Dosage: 30 ML, QD, USED TO DILUTE 1 G CYCLOPHOSPHAMIDE, (DOSAGE FORM: INJECTION)
     Route: 041
     Dates: start: 20230103, end: 20230104

REACTIONS (3)
  - Hepatic function abnormal [Recovering/Resolving]
  - Drug-induced liver injury [Unknown]
  - Discomfort [Unknown]

NARRATIVE: CASE EVENT DATE: 20230106
